FAERS Safety Report 25943005 (Version 1)
Quarter: 2025Q4

REPORT INFORMATION
  Report Type: Spontaneous
  Country: US (occurrence: None)
  Receive Date: 20251020
  Receipt Date: 20251020
  Transmission Date: 20260118
  Serious: Yes (Death)
  Sender: FDA-CTU
  Company Number: None

PATIENT
  Sex: Female
  Weight: 68 kg

DRUGS (4)
  1. CAPECITABINE [Suspect]
     Active Substance: CAPECITABINE
     Indication: Breast cancer
     Dosage: FREQUENCY : TWICE A DAY;?
     Route: 048
     Dates: start: 20251001, end: 20251008
  2. FUROSEMIDE [Concomitant]
     Active Substance: FUROSEMIDE
     Dates: start: 20251001, end: 20251008
  3. NEUPOGEN [Concomitant]
     Active Substance: FILGRASTIM
     Dates: start: 20250529, end: 20251008
  4. cepodoxime pro [Concomitant]
     Dates: start: 20251001, end: 20251004

REACTIONS (1)
  - Disease progression [None]
